FAERS Safety Report 6402491-3 (Version None)
Quarter: 2009Q4

REPORT INFORMATION
  Report Type: 
  Country: None (occurrence: None)
  Receive Date: 20091015
  Receipt Date: 20091005
  Transmission Date: 20100525
  Serious: Yes (Hospitalization)
  Sender: FDA-Public Use
  Company Number: IT-GENENTECH-292171

PATIENT
  Sex: Female

DRUGS (1)
  1. AVASTIN [Suspect]
     Indication: COLON CANCER
     Dosage: 400 MG, UNK
     Route: 042
     Dates: start: 20090522, end: 20090622

REACTIONS (2)
  - ABDOMINAL PAIN [None]
  - PYREXIA [None]
